FAERS Safety Report 11479400 (Version 1)
Quarter: 2015Q3

REPORT INFORMATION
  Report Type: Spontaneous
  Country: US (occurrence: None)
  Receive Date: 20150909
  Receipt Date: 20150909
  Transmission Date: 20151125
  Serious: No
  Sender: FDA-Public Use
  Company Number: US-MDT-ADR-2015-01744

PATIENT
  Age: 24 Year
  Sex: Female

DRUGS (2)
  1. BACLOFEN INTRATHECAL [Suspect]
     Active Substance: BACLOFEN
     Dosage: UNK
  2. UNKNOWN MEDICATION [Suspect]
     Active Substance: UNSPECIFIED INGREDIENT
     Dosage: 40MG MAINTENANCE,G TUBE

REACTIONS (1)
  - Abnormal behaviour [None]
